FAERS Safety Report 4957061-0 (Version None)
Quarter: 2006Q1

REPORT INFORMATION
  Report Type: 
  Country: None (occurrence: None)
  Receive Date: 20060323
  Receipt Date: 20060314
  Transmission Date: 20060701
  Serious: Yes (Other)
  Sender: FDA-Public Use
  Company Number: 2006036176

PATIENT
  Age: 8 Year
  Sex: Male

DRUGS (7)
  1. ZYRTEC [Suspect]
     Indication: MULTIPLE ALLERGIES
     Dates: end: 20060101
  2. ZITHROMAX [Suspect]
     Indication: ILL-DEFINED DISORDER
     Dosage: 200 MG
     Dates: start: 20050513
  3. FLOVENT [Suspect]
     Indication: PROPHYLAXIS
     Dosage: 44 MCG, INHALATION
     Route: 055
     Dates: start: 20050513, end: 20060101
  4. ALBUTEROL [Suspect]
     Indication: PROPHYLAXIS
     Dosage: 0.83 MG
     Dates: start: 20050513, end: 20060101
  5. RHINOCORT [Suspect]
     Indication: ILL-DEFINED DISORDER
     Dosage: 32 MCG, NASAL
     Route: 045
     Dates: start: 20050513
  6. MONTELUKAST (MONTELUKAST) [Suspect]
     Indication: ILL-DEFINED DISORDER
     Dosage: 4 MG
     Dates: start: 20050513
  7. ALBUTEROL [Concomitant]

REACTIONS (14)
  - ABNORMAL BEHAVIOUR [None]
  - ANXIETY [None]
  - ASTHENIA [None]
  - CHOKING [None]
  - DISTURBANCE IN ATTENTION [None]
  - EDUCATIONAL PROBLEM [None]
  - FRUSTRATION [None]
  - IRRITABILITY [None]
  - LACRIMATION INCREASED [None]
  - MALAISE [None]
  - PERSONALITY DISORDER [None]
  - RESTLESSNESS [None]
  - RHINORRHOEA [None]
  - STRESS [None]
